FAERS Safety Report 4629633-4 (Version None)
Quarter: 2005Q2

REPORT INFORMATION
  Report Type: 
  Country: None (occurrence: None)
  Receive Date: 20050406
  Receipt Date: 20030710
  Transmission Date: 20051028
  Serious: Yes (Death, Hospitalization)
  Sender: FDA-Public Use
  Company Number: ANTE000725

PATIENT
  Age: 60 Year
  Sex: Male
  Weight: 70.5 kg

DRUGS (9)
  1. NATALIZUMAB (NATALIZUMAB) [Suspect]
     Indication: CROHN'S DISEASE
     Dosage: 300 MG;QM; IV
     Route: 042
     Dates: start: 20030212, end: 20030603
  2. LOPERAMIDE HCL [Concomitant]
  3. HYDROCHLORIDE [Concomitant]
  4. PERENTEROL LYOPHILIC [Concomitant]
  5. IRON [Concomitant]
  6. INFLAXIMAB [Concomitant]
  7. AZATHIOPRINE [Concomitant]
  8. BUDESONIDE [Concomitant]
  9. SULFASALAZINE [Concomitant]

REACTIONS (5)
  - ASTROCYTOMA MALIGNANT [None]
  - EPILEPSY [None]
  - MALIGNANT NEOPLASM PROGRESSION [None]
  - OEDEMA [None]
  - PROGRESSIVE MULTIFOCAL LEUKOENCEPHALOPATHY [None]
